FAERS Safety Report 10567809 (Version 1)
Quarter: 2014Q4

REPORT INFORMATION
  Report Type: Spontaneous
  Country: ES (occurrence: ES)
  Receive Date: 20141106
  Receipt Date: 20141106
  Transmission Date: 20150529
  Serious: Yes (Hospitalization)
  Sender: FDA-Public Use
  Company Number: ES-009507513-1410ESP014064

PATIENT
  Age: 79 Year
  Sex: Female

DRUGS (3)
  1. ENALAPRIL MALEATE (+) HYDROCHLOROTHIAZIDE [Concomitant]
     Active Substance: ENALAPRIL MALEATE\HYDROCHLOROTHIAZIDE
     Indication: HYPERTENSION
     Dosage: 1-0-0 ENALAPRIL/HCT START DATE: } 10 YEARS THERAPEUTIC INDICATION: HBP
     Route: 048
     Dates: start: 2002
  2. EZETROL 10 MG COMPRIMIDOS [Suspect]
     Active Substance: EZETIMIBE
     Indication: DYSLIPIDAEMIA
     Dosage: 1 CP
     Route: 048
     Dates: start: 20131018, end: 20140124
  3. LORAZEPAM. [Concomitant]
     Active Substance: LORAZEPAM
     Indication: INSOMNIA
     Dosage: 1 CP LORAZEPAM START DATE: } 10 YEARS THERAPEUTIC INDICATION: INSOMNIA
     Route: 048
     Dates: start: 2002

REACTIONS (1)
  - Bone marrow failure [Not Recovered/Not Resolved]

NARRATIVE: CASE EVENT DATE: 20140124
